FAERS Safety Report 8482300 (Version 3)
Quarter: 2012Q4

REPORT INFORMATION
  Report Type: 
  Country: CA (occurrence: CA)
  Receive Date: 20120329
  Receipt Date: 20121025
  Transmission Date: 20130627
  Serious: Yes (Other)
  Sender: FDA-Public Use
  Company Number: PHHY2012CA026567

PATIENT
  Sex: Female

DRUGS (3)
  1. GLEEVEC [Suspect]
     Indication: CHRONIC MYELOID LEUKAEMIA
     Dosage: 400 mg, daily
     Route: 048
  2. GLEEVEC [Suspect]
     Dosage: 300 mg, daily
     Route: 048
  3. DASATINIB [Suspect]

REACTIONS (6)
  - Ataxia [Recovering/Resolving]
  - Diverticulitis [Unknown]
  - Diarrhoea [Recovering/Resolving]
  - Abdominal discomfort [Unknown]
  - Drug ineffective [Unknown]
  - Malaise [Unknown]
